FAERS Safety Report 9305089 (Version 1)
Quarter: 2013Q2

REPORT INFORMATION
  Report Type: Spontaneous
  Country: US (occurrence: None)
  Receive Date: 20130522
  Receipt Date: 20130522
  Transmission Date: 20140414
  Serious: Yes (Other)
  Sender: FDA-Public Use
  Company Number: None

PATIENT
  Age: 84 Year
  Sex: Female

DRUGS (1)
  1. ZELBORAF [Suspect]
     Indication: MALIGNANT MELANOMA
     Dosage: 240 MG 960 MG BID BY MOUTH
     Route: 048
     Dates: start: 20130510, end: 20130512

REACTIONS (2)
  - Rash generalised [None]
  - Rash pruritic [None]
